FAERS Safety Report 15412941 (Version 4)
Quarter: 2018Q4

REPORT INFORMATION
  Report Type: Report from Study
  Country: US (occurrence: US)
  Receive Date: 20180921
  Receipt Date: 20181112
  Transmission Date: 20190204
  Serious: Yes (Life-Threatening)
  Sender: FDA-Public Use
  Company Number: PHEH2018US039212

PATIENT
  Sex: Female

DRUGS (1)
  1. JADENU [Suspect]
     Active Substance: DEFERASIROX
     Indication: MYELODYSPLASTIC SYNDROME
     Dosage: 360 MG, BID
     Route: 065
     Dates: start: 20180903

REACTIONS (4)
  - Pruritus [Not Recovered/Not Resolved]
  - Angioedema [Unknown]
  - Swelling face [Recovering/Resolving]
  - Rash [Unknown]
